FAERS Safety Report 16162325 (Version 1)
Quarter: 2019Q2

REPORT INFORMATION
  Report Type: Spontaneous
  Country: US (occurrence: US)
  Receive Date: 20190301
  Receipt Date: 20190301
  Transmission Date: 20190711
  Serious: Yes (Hospitalization)
  Sender: FDA-Public Use
  Company Number: None

PATIENT
  Age: 46 Year
  Sex: Female

DRUGS (7)
  1. CARBOPLATIN. [Suspect]
     Active Substance: CARBOPLATIN
  2. PERTUZUMAB. [Suspect]
     Active Substance: PERTUZUMAB
  3. CEPHALEXIN. [Suspect]
     Active Substance: CEPHALEXIN
  4. PACLITAXEL. [Suspect]
     Active Substance: PACLITAXEL
     Indication: BREAST CANCER FEMALE
     Dates: start: 20180817, end: 20181207
  5. VANCOMYCIN [Suspect]
     Active Substance: VANCOMYCIN
  6. TRASTUZUMAB. [Suspect]
     Active Substance: TRASTUZUMAB
  7. CEFAZOLIN [Suspect]
     Active Substance: CEFAZOLIN

REACTIONS (1)
  - Mastitis [None]

NARRATIVE: CASE EVENT DATE: 20190222
